FAERS Safety Report 20168846 (Version 1)
Quarter: 2021Q4

REPORT INFORMATION
  Report Type: Spontaneous
  Country: PT (occurrence: PT)
  Receive Date: 20211210
  Receipt Date: 20211210
  Transmission Date: 20220303
  Serious: Yes (Hospitalization, Other)
  Sender: FDA-Public Use
  Company Number: PT-VIWITPHARMA-2021VWTLIT00034

PATIENT
  Age: 45 Year
  Sex: Female

DRUGS (15)
  1. LEVETIRACETAM [Suspect]
     Active Substance: LEVETIRACETAM
     Indication: Epilepsy
     Route: 065
     Dates: start: 2007
  2. LEVETIRACETAM [Suspect]
     Active Substance: LEVETIRACETAM
     Route: 065
     Dates: start: 2009, end: 2015
  3. CARBAMAZEPINE [Concomitant]
     Active Substance: CARBAMAZEPINE
     Indication: Epilepsy
     Route: 065
     Dates: start: 2007
  4. CARBAMAZEPINE [Concomitant]
     Active Substance: CARBAMAZEPINE
     Route: 065
     Dates: start: 2011
  5. CARBAMAZEPINE [Concomitant]
     Active Substance: CARBAMAZEPINE
     Route: 065
     Dates: start: 2015
  6. CARBAMAZEPINE [Concomitant]
     Active Substance: CARBAMAZEPINE
     Route: 065
  7. CLOBAZAM [Concomitant]
     Active Substance: CLOBAZAM
     Indication: Epilepsy
     Route: 065
     Dates: start: 2007
  8. CLOBAZAM [Concomitant]
     Active Substance: CLOBAZAM
     Route: 065
     Dates: start: 2010
  9. LAMOTRIGINE [Concomitant]
     Active Substance: LAMOTRIGINE
     Indication: Epilepsy
     Route: 065
  10. CLONAZEPAM [Concomitant]
     Active Substance: CLONAZEPAM
     Indication: Epilepsy
     Route: 065
  11. RISPERIDONE [Interacting]
     Active Substance: RISPERIDONE
     Indication: Delusion
     Route: 042
  12. RISPERIDONE [Interacting]
     Active Substance: RISPERIDONE
     Indication: Schizophrenia
     Route: 042
  13. RISPERIDONE [Interacting]
     Active Substance: RISPERIDONE
     Route: 065
  14. ZOTEPINE [Interacting]
     Active Substance: ZOTEPINE
     Indication: Schizophrenia
     Route: 065
  15. ZOTEPINE [Interacting]
     Active Substance: ZOTEPINE
     Route: 065

REACTIONS (6)
  - Psychotic disorder [Recovered/Resolved]
  - Schizophrenia [Recovered/Resolved]
  - Hallucination, auditory [Recovered/Resolved]
  - Persecutory delusion [Recovered/Resolved]
  - Delusion [Recovered/Resolved]
  - Behaviour disorder [Recovered/Resolved]
